FAERS Safety Report 19394691 (Version 1)
Quarter: 2021Q2

REPORT INFORMATION
  Report Type: Spontaneous
  Country: US (occurrence: US)
  Receive Date: 20210609
  Receipt Date: 20210609
  Transmission Date: 20210717
  Serious: No
  Sender: FDA-Public Use
  Company Number: US-JNJFOC-20210500012

PATIENT
  Age: 67 Year
  Sex: Female
  Weight: 95.3 kg

DRUGS (5)
  1. XARELTO [Suspect]
     Active Substance: RIVAROXABAN
     Indication: ATRIAL FIBRILLATION
     Route: 048
  2. XARELTO [Suspect]
     Active Substance: RIVAROXABAN
     Indication: CEREBROVASCULAR ACCIDENT PROPHYLAXIS
  3. TREPROSTINIL SODIUM [Suspect]
     Active Substance: TREPROSTINIL SODIUM
     Indication: PULMONARY ARTERIAL HYPERTENSION
     Dosage: 18?54 G
     Dates: start: 20210315
  4. MACITENTAN [Concomitant]
     Active Substance: MACITENTAN
     Route: 065
  5. RIOCIGUAT. [Concomitant]
     Active Substance: RIOCIGUAT
     Route: 065

REACTIONS (5)
  - Cough [Unknown]
  - Epistaxis [Unknown]
  - Hypoaesthesia [Recovering/Resolving]
  - Seasonal allergy [Unknown]
  - Haemoglobin decreased [Unknown]

NARRATIVE: CASE EVENT DATE: 20210407
